FAERS Safety Report 19804524 (Version 1)
Quarter: 2021Q3

REPORT INFORMATION
  Report Type: Spontaneous
  Country: AR (occurrence: AR)
  Receive Date: 20210908
  Receipt Date: 20210908
  Transmission Date: 20211014
  Serious: Yes (Life-Threatening, Other)
  Sender: FDA-Public Use
  Company Number: AR-PFIZER INC-202101110001

PATIENT
  Age: 69 Year
  Sex: Female

DRUGS (2)
  1. IBRANCE [Suspect]
     Active Substance: PALBOCICLIB
     Indication: BREAST CANCER METASTATIC
     Dosage: 125 MG, CYCLIC (DAILY, SCHEME 3X1)
     Dates: start: 20190105
  2. LETROZOL [Concomitant]
     Active Substance: LETROZOLE

REACTIONS (6)
  - Skin injury [Recovered/Resolved]
  - Hypersensitivity [Recovered/Resolved]
  - Sciatica [Unknown]
  - Hypoxia [Recovered/Resolved]
  - Laryngospasm [Recovered/Resolved]
  - Memory impairment [Recovered/Resolved]

NARRATIVE: CASE EVENT DATE: 20210820
